FAERS Safety Report 8616105-5 (Version None)
Quarter: 2012Q3

REPORT INFORMATION
  Report Type: 
  Country: None (occurrence: None)
  Receive Date: 20120823
  Receipt Date: 19891115
  Transmission Date: 20120928
  Serious: Yes (Death)
  Sender: FDA-Public Use
  Company Number: US-ROCHE-1099892

PATIENT
  Age: 51 Year
  Sex: Male

DRUGS (4)
  1. ACTIVASE [Suspect]
     Dosage: 100 MG INFUSING AT 50 CC/HR
  2. ACTIVASE [Suspect]
     Indication: MYOCARDIAL INFARCTION
     Dosage: 10 MG IVP
  3. LIDOCAINE HYDROCHLORIDE [Concomitant]
     Dosage: 2MG/MIN OR 30CC/HR
     Route: 040
  4. MORPHINE SULFATE [Concomitant]

REACTIONS (2)
  - DEATH [None]
  - VOMITING [None]
